FAERS Safety Report 8877512 (Version 1)
Quarter: 2012Q4

REPORT INFORMATION
  Report Type: 
  Country: DE (occurrence: DE)
  Receive Date: 20121024
  Receipt Date: 20121024
  Transmission Date: 20130627
  Serious: Yes (Hospitalization)
  Sender: FDA-Public Use
  Company Number: DE-PFIZER INC-2012259888

PATIENT
  Age: 55 Year
  Sex: Male
  Weight: 80 kg

DRUGS (2)
  1. LYRICA [Suspect]
     Indication: PAIN
     Dosage: 75 mg, 2x/day
     Route: 048
     Dates: start: 20111101, end: 20120106
  2. TARGIN [Concomitant]
     Indication: PAIN
     Dosage: 1 DF, 3x/day
     Route: 048
     Dates: start: 20111001, end: 20120201

REACTIONS (6)
  - Agitation [Recovering/Resolving]
  - Muscle rigidity [Recovering/Resolving]
  - Muscular weakness [Recovering/Resolving]
  - Panic reaction [Recovering/Resolving]
  - Psychomotor retardation [Recovering/Resolving]
  - Speech disorder [Recovering/Resolving]
